FAERS Safety Report 11902486 (Version 2)
Quarter: 2016Q1

REPORT INFORMATION
  Report Type: Spontaneous
  Country: US (occurrence: US)
  Receive Date: 20160108
  Receipt Date: 20160204
  Transmission Date: 20160526
  Serious: No
  Sender: FDA-Public Use
  Company Number: US-SHIRE-US201600003

PATIENT
  Age: 21 Year
  Sex: Female
  Weight: 46.71 kg

DRUGS (2)
  1. LIPIDS NOS W/PROTEINS NOS/VITAMINS NOS [Concomitant]
     Active Substance: AMINO ACIDS\SOYBEAN OIL\VITAMINS
     Indication: SHORT-BOWEL SYNDROME
     Dosage: 2500 ML, 1X/DAY:QD OVER 9.5 HOURS
     Route: 065
  2. GATTEX [Suspect]
     Active Substance: TEDUGLUTIDE\WATER
     Indication: SHORT-BOWEL SYNDROME
     Dosage: 2.4 MG, 1X/DAY:QD
     Route: 058
     Dates: start: 20151222

REACTIONS (3)
  - Constipation [Unknown]
  - Abdominal distension [Recovered/Resolved]
  - Small intestinal bacterial overgrowth [Unknown]

NARRATIVE: CASE EVENT DATE: 20151227
